FAERS Safety Report 6631641-9 (Version None)
Quarter: 2010Q1

REPORT INFORMATION
  Report Type: 
  Country: None (occurrence: None)
  Receive Date: 20100312
  Receipt Date: 20100303
  Transmission Date: 20100710
  Serious: Yes (Other)
  Sender: FDA-Public Use
  Company Number: US-JNJFOC-20100302037

PATIENT
  Age: 38 Year
  Sex: Male

DRUGS (1)
  1. INFLIXIMAB [Suspect]
     Indication: CROHN'S DISEASE
     Route: 042

REACTIONS (4)
  - BACTERAEMIA [None]
  - RENAL ATROPHY [None]
  - RENAL FAILURE ACUTE [None]
  - TAKAYASU'S ARTERITIS [None]
